FAERS Safety Report 5917189-5 (Version None)
Quarter: 2008Q4

REPORT INFORMATION
  Report Type: 
  Country: None (occurrence: None)
  Receive Date: 20081010
  Receipt Date: 20081010
  Transmission Date: 20090506
  Serious: Yes (Hospitalization)
  Sender: FDA-Public Use
  Company Number: None

PATIENT
  Age: 24 Year
  Sex: Female
  Weight: 113.3993 kg

DRUGS (2)
  1. METFORMIN HCL [Suspect]
     Indication: DIABETES MELLITUS
     Dosage: 1000MG 2X DAILY PO
     Route: 048
     Dates: start: 20080213, end: 20080904
  2. SULFA 800MG ??? [Suspect]
     Indication: CYSTITIS
     Dosage: 800MG 4X DAILY PO
     Route: 048
     Dates: start: 20080825, end: 20080904

REACTIONS (1)
  - STEVENS-JOHNSON SYNDROME [None]
